FAERS Safety Report 11021577 (Version 7)
Quarter: 2017Q2

REPORT INFORMATION
  Report Type: Spontaneous
  Country: US (occurrence: US)
  Receive Date: 20150413
  Receipt Date: 20170622
  Transmission Date: 20170829
  Serious: Yes (Death, Hospitalization)
  Sender: FDA-Public Use
  Company Number: US-ACTELION-A-US2015-116159

PATIENT
  Age: 70 Year
  Sex: Female
  Weight: 79.37 kg

DRUGS (8)
  1. VENTAVIS [Suspect]
     Active Substance: ILOPROST
     Indication: PULMONARY ARTERIAL HYPERTENSION
     Dosage: 5 MCG, 6-9X DAILY
     Route: 055
     Dates: start: 20100524
  2. REVATIO [Suspect]
     Active Substance: SILDENAFIL CITRATE
     Indication: PULMONARY ARTERIAL HYPERTENSION
     Dosage: 80 UNK, TID
     Route: 065
  3. LASIX [Concomitant]
     Active Substance: FUROSEMIDE
  4. VELETRI [Suspect]
     Active Substance: EPOPROSTENOL
     Indication: PULMONARY ARTERIAL HYPERTENSION
     Dosage: UNK
     Route: 055
     Dates: end: 20170604
  5. OXYGEN. [Concomitant]
     Active Substance: OXYGEN
  6. ALDACTONE [Concomitant]
     Active Substance: SPIRONOLACTONE
  7. LETAIRIS [Suspect]
     Active Substance: AMBRISENTAN
     Indication: PULMONARY ARTERIAL HYPERTENSION
     Dosage: 10 UNK, QD
     Route: 065
  8. ASA [Concomitant]
     Active Substance: ASPIRIN

REACTIONS (11)
  - Fluid overload [Recovered/Resolved]
  - Pulmonary arterial hypertension [Fatal]
  - Dyspnoea exertional [Fatal]
  - Cardiac failure congestive [Recovered/Resolved]
  - Dyspnoea [Unknown]
  - Oedema [Fatal]
  - Respiratory distress [Fatal]
  - Product use issue [Unknown]
  - Right ventricular failure [Fatal]
  - Drug dose omission [Unknown]
  - Left ventricular failure [Recovered/Resolved]

NARRATIVE: CASE EVENT DATE: 20150306
